FAERS Safety Report 17604543 (Version 1)
Quarter: 2020Q1

REPORT INFORMATION
  Report Type: Spontaneous
  Country: US (occurrence: US)
  Receive Date: 20200331
  Receipt Date: 20200331
  Transmission Date: 20200409
  Serious: Yes (Hospitalization, Other)
  Sender: FDA-Public Use
  Company Number: US-PFIZER INC-2020131944

PATIENT
  Age: 73 Year
  Sex: Female
  Weight: 50.8 kg

DRUGS (2)
  1. LYRICA [Suspect]
     Active Substance: PREGABALIN
     Indication: FIBROMYALGIA
     Dosage: 150 MG, 2X/DAY
     Route: 048
     Dates: start: 201905
  2. LYRICA [Suspect]
     Active Substance: PREGABALIN
     Indication: ARTHRALGIA

REACTIONS (3)
  - Hyperhidrosis [Unknown]
  - Influenza [Recovered/Resolved with Sequelae]
  - Pneumonia streptococcal [Recovering/Resolving]

NARRATIVE: CASE EVENT DATE: 20200307
